FAERS Safety Report 5748982-X (Version None)
Quarter: 2008Q2

REPORT INFORMATION
  Report Type: 
  Country: None (occurrence: None)
  Receive Date: 20080527
  Receipt Date: 20080515
  Transmission Date: 20081010
  Serious: Yes (Life-Threatening, Hospitalization)
  Sender: FDA-Public Use
  Company Number: FR-WYE-G01343208

PATIENT
  Sex: Male
  Weight: 14.5 kg

DRUGS (2)
  1. ADVIL [Suspect]
     Indication: PYREXIA
     Route: 048
     Dates: start: 20080105, end: 20080110
  2. DOLIPRANE [Suspect]
     Indication: PYREXIA
     Route: 048
     Dates: start: 20080105, end: 20080110

REACTIONS (10)
  - ABSCESS NECK [None]
  - CELLULITIS [None]
  - CONDITION AGGRAVATED [None]
  - CONJUNCTIVITIS [None]
  - HYPOCHROMIC ANAEMIA [None]
  - MICROCYTIC ANAEMIA [None]
  - MUSCULOSKELETAL STIFFNESS [None]
  - RHINITIS [None]
  - SUPERINFECTION [None]
  - VARICELLA [None]
